FAERS Safety Report 5045667-2 (Version None)
Quarter: 2006Q3

REPORT INFORMATION
  Report Type: 
  Country: None (occurrence: None)
  Receive Date: 20060707
  Receipt Date: 20060512
  Transmission Date: 20061208
  Serious: Yes (Hospitalization, Other)
  Sender: FDA-Public Use
  Company Number: AU-ABBOTT-06P-008-0333127-00

PATIENT
  Sex: Male

DRUGS (7)
  1. EPILIM [Suspect]
     Indication: MYOCLONIC EPILEPSY
     Route: 048
     Dates: start: 20030401
  2. EPILIM [Suspect]
     Route: 048
     Dates: end: 20060315
  3. EPILIM [Suspect]
     Route: 048
     Dates: start: 20060316
  4. EPILIM [Suspect]
     Route: 048
  5. STIRIPENTOL [Interacting]
     Indication: MYOCLONIC EPILEPSY
     Route: 048
     Dates: start: 20050501
  6. STIRIPENTOL [Interacting]
     Route: 048
     Dates: end: 20060401
  7. CLOBAZAM [Concomitant]
     Indication: DRUG USE FOR UNKNOWN INDICATION
     Route: 065

REACTIONS (5)
  - ANOREXIA [None]
  - CONSTIPATION [None]
  - DRUG INTERACTION [None]
  - GRAND MAL CONVULSION [None]
  - PANCREATITIS [None]
